FAERS Safety Report 4893266-5 (Version None)
Quarter: 2006Q1

REPORT INFORMATION
  Report Type: 
  Country: None (occurrence: None)
  Receive Date: 20060124
  Receipt Date: 20060112
  Transmission Date: 20060701
  Serious: Yes (Other)
  Sender: FDA-Public Use
  Company Number: SUSI-2006-00047

PATIENT
  Age: 2 Year
  Sex: Female

DRUGS (1)
  1. ADDERALL 10 [Suspect]
     Dosage: 2-3 30MG TABLETS

REACTIONS (2)
  - ACCIDENTAL DRUG INTAKE BY CHILD [None]
  - TARDIVE DYSKINESIA [None]
